FAERS Safety Report 10026301 (Version 1)
Quarter: 2014Q1

REPORT INFORMATION
  Report Type: Spontaneous
  Country: BD (occurrence: BD)
  Receive Date: 20140320
  Receipt Date: 20140320
  Transmission Date: 20141002
  Serious: Yes (Other)
  Sender: FDA-Public Use
  Company Number: BD-ROCHE-1362459

PATIENT
  Age: 28 Year
  Sex: Female
  Weight: 64 kg

DRUGS (1)
  1. PEGASYS [Suspect]
     Indication: HEPATITIS B
     Dosage: STARTED THERAPY FROM FEB-2013
     Route: 065
     Dates: start: 201302, end: 20130724

REACTIONS (14)
  - Myalgia [Unknown]
  - Arthralgia [Unknown]
  - Alopecia [Unknown]
  - Gingival bleeding [Unknown]
  - Vomiting [Unknown]
  - Local swelling [Unknown]
  - Burning sensation [Unknown]
  - Change of bowel habit [Unknown]
  - Drug ineffective [Unknown]
  - Hepatitis B [Unknown]
  - Muscular weakness [Unknown]
  - Burning sensation [Unknown]
  - Haematochezia [Unknown]
  - Pain [Unknown]
